FAERS Safety Report 10562278 (Version 1)
Quarter: 2014Q4

REPORT INFORMATION
  Report Type: Spontaneous
  Country: SI (occurrence: None)
  Receive Date: 20141031
  Receipt Date: 20141031
  Transmission Date: 20150529
  Serious: Yes (Hospitalization)
  Sender: FDA-Public Use
  Company Number: FK201404520

PATIENT
  Age: 2 Year
  Sex: Male

DRUGS (3)
  1. VALPROATE [Suspect]
     Active Substance: VALPROATE SODIUM
  2. VIGABATRIN [Suspect]
     Active Substance: VIGABATRIN
  3. LEVETIRACETAM. [Suspect]
     Active Substance: LEVETIRACETAM

REACTIONS (7)
  - Thrombocytopenia [None]
  - Leukocytosis [None]
  - Drug reaction with eosinophilia and systemic symptoms [None]
  - Encephalopathy [None]
  - Upper respiratory tract infection [None]
  - Alanine aminotransferase increased [None]
  - Coma [None]
